FAERS Safety Report 13621334 (Version 9)
Quarter: 2019Q3

REPORT INFORMATION
  Report Type: Spontaneous
  Country: US (occurrence: US)
  Receive Date: 20170607
  Receipt Date: 20190705
  Transmission Date: 20191004
  Serious: No
  Sender: FDA-Public Use
  Company Number: US-PFIZER INC-2017244612

PATIENT
  Age: 64 Year
  Sex: Female
  Weight: 84 kg

DRUGS (4)
  1. IBRANCE [Suspect]
     Active Substance: PALBOCICLIB
     Dosage: 125 MG, CYCLIC (D1-21 Q28 DAYS)/(DAYS 1-21 Q28 DAYS)
     Route: 048
     Dates: start: 2017, end: 201906
  2. IBRANCE [Suspect]
     Active Substance: PALBOCICLIB
     Dosage: 125 MG, CYCLIC (D1-D21 Q28 DAYS)
     Route: 048
     Dates: start: 2017, end: 2017
  3. IBRANCE [Suspect]
     Active Substance: PALBOCICLIB
     Indication: BREAST CANCER METASTATIC
     Dosage: 125 MG, CYCLIC (DAYS 1-21 Q 28 DAYS)
     Route: 048
     Dates: start: 201506
  4. IBRANCE [Suspect]
     Active Substance: PALBOCICLIB
     Dosage: 125 MG, CYCLIC (DAYS 1-21 Q 28 DAYS)
     Route: 048
     Dates: start: 20170531, end: 2017

REACTIONS (17)
  - Malaise [Unknown]
  - Decreased appetite [Unknown]
  - White blood cell count decreased [Unknown]
  - Somnolence [Unknown]
  - Fall [Unknown]
  - Neoplasm progression [Unknown]
  - Intervertebral disc protrusion [Unknown]
  - Weight decreased [Unknown]
  - Dyspepsia [Unknown]
  - Fatigue [Not Recovered/Not Resolved]
  - Gastric disorder [Unknown]
  - Abdominal discomfort [Unknown]
  - Sinus disorder [Unknown]
  - Vomiting [Unknown]
  - Nausea [Recovering/Resolving]
  - Pyrexia [Unknown]
  - Osteoporosis [Unknown]
